FAERS Safety Report 9973797 (Version 1)
Quarter: 2014Q1

REPORT INFORMATION
  Report Type: Spontaneous
  Country: FR (occurrence: FR)
  Receive Date: 20140306
  Receipt Date: 20140306
  Transmission Date: 20141002
  Serious: Yes (Other)
  Sender: FDA-Public Use
  Company Number: FR-ASTRAZENECA-2014SE14574

PATIENT
  Age: 74 Year
  Sex: Male

DRUGS (4)
  1. INEXIUM [Suspect]
     Route: 048
     Dates: start: 2013, end: 2013
  2. ALLOPURINOL [Suspect]
     Route: 048
     Dates: start: 2013, end: 2013
  3. LEVACT [Concomitant]
  4. MABTHERA [Concomitant]

REACTIONS (4)
  - Drug reaction with eosinophilia and systemic symptoms [Recovering/Resolving]
  - Toxic skin eruption [Unknown]
  - Pyrexia [Unknown]
  - Lung disorder [Unknown]
